FAERS Safety Report 5944477-9 (Version None)
Quarter: 2008Q4

REPORT INFORMATION
  Report Type: 
  Country: None (occurrence: None)
  Receive Date: 20081021
  Receipt Date: 20080208
  Transmission Date: 20090506
  Serious: Yes (Other)
  Sender: FDA-Public Use
  Company Number: HQWYE026927FEB06

PATIENT
  Age: 57 Year
  Sex: Female

DRUGS (7)
  1. PREMARIN [Suspect]
  2. CLIMARA [Suspect]
  3. ESTRACE [Suspect]
  4. MEDROXYPROGESTERONE [Suspect]
  5. PROMETRIUM [Suspect]
  6. PROVERA [Suspect]
  7. VIVELLE [Suspect]

REACTIONS (1)
  - BREAST CANCER [None]
